FAERS Safety Report 23065425 (Version 1)
Quarter: 2023Q4

REPORT INFORMATION
  Report Type: Spontaneous
  Country: KR (occurrence: None)
  Receive Date: 20231013
  Receipt Date: 20231013
  Transmission Date: 20240110
  Serious: Yes (Death)
  Sender: FDA-Public Use
  Company Number: 2023A233742

PATIENT
  Age: 24860 Day
  Sex: Female

DRUGS (2)
  1. IMFINZI [Suspect]
     Active Substance: DURVALUMAB
     Dosage: 500MG / 3VIAL
     Route: 042
     Dates: start: 20230616
  2. IMFINZI [Suspect]
     Active Substance: DURVALUMAB
     Dosage: 500MG / 3VIAL
     Route: 042
     Dates: start: 20230706

REACTIONS (1)
  - Malignant neoplasm progression [Fatal]

NARRATIVE: CASE EVENT DATE: 20230730
